FAERS Safety Report 12253080 (Version 2)
Quarter: 2016Q2

REPORT INFORMATION
  Report Type: Spontaneous
  Country: US (occurrence: US)
  Receive Date: 20160411
  Receipt Date: 20160606
  Transmission Date: 20160815
  Serious: Yes (Other)
  Sender: FDA-Public Use
  Company Number: US-PFIZER INC-2016202188

PATIENT
  Age: 57 Year
  Sex: Female
  Weight: 58.96 kg

DRUGS (1)
  1. ZOLOFT [Suspect]
     Active Substance: SERTRALINE HYDROCHLORIDE
     Indication: POST-TRAUMATIC STRESS DISORDER
     Dosage: 100 MG, DAILY
     Route: 048
     Dates: start: 20140601

REACTIONS (4)
  - Confusional state [Recovered/Resolved]
  - Feeling abnormal [Recovered/Resolved]
  - Disorientation [Recovered/Resolved]
  - Road traffic accident [Recovered/Resolved]

NARRATIVE: CASE EVENT DATE: 20141008
